FAERS Safety Report 15249439 (Version 1)
Quarter: 2018Q3

REPORT INFORMATION
  Report Type: Spontaneous
  Country: US (occurrence: US)
  Receive Date: 20180807
  Receipt Date: 20180807
  Transmission Date: 20181010
  Serious: No
  Sender: FDA-Public Use
  Company Number: US-PERRIGO-18US002446

PATIENT
  Age: 60 Year
  Sex: Female
  Weight: 86.17 kg

DRUGS (8)
  1. LORATADINE. [Suspect]
     Active Substance: LORATADINE
     Indication: EAR CONGESTION
     Dosage: 10 MG, NIGHTLY
     Route: 048
     Dates: start: 2017, end: 2017
  2. OMEGA 3                            /01334101/ [Concomitant]
     Active Substance: OMEGA-3 FATTY ACIDS
     Indication: HYPOCHOLESTEROLAEMIA
     Dosage: UNK
     Route: 065
     Dates: start: 2008
  3. SYNTHROID [Concomitant]
     Active Substance: LEVOTHYROXINE SODIUM
     Indication: HYPOTHYROIDISM
     Dosage: 88MCG
     Route: 065
     Dates: start: 2008
  4. MAGNESIUM [Concomitant]
     Active Substance: MAGNESIUM
     Indication: HYPOCHOLESTEROLAEMIA
     Dosage: UNK
     Route: 065
     Dates: start: 2008
  5. LORATADINE. [Suspect]
     Active Substance: LORATADINE
     Dosage: 10 MG, NIGHTLY
     Route: 048
     Dates: start: 2017, end: 20180228
  6. VITAMIN D                          /00107901/ [Concomitant]
     Active Substance: ERGOCALCIFEROL
     Indication: VITAMIN D DECREASED
     Dosage: 1000IU
     Route: 065
     Dates: start: 2008
  7. PRAVASTATIN. [Concomitant]
     Active Substance: PRAVASTATIN
     Indication: HYPOCHOLESTEROLAEMIA
     Dosage: 80MG
     Route: 065
     Dates: start: 2008
  8. OMEPRAZOLE. [Concomitant]
     Active Substance: OMEPRAZOLE
     Indication: PRODUCT USED FOR UNKNOWN INDICATION
     Dosage: UNK
     Route: 065
     Dates: start: 2008

REACTIONS (3)
  - Off label use [Recovered/Resolved]
  - Therapeutic response unexpected [Unknown]
  - Conjunctivitis [Not Recovered/Not Resolved]

NARRATIVE: CASE EVENT DATE: 2017
